FAERS Safety Report 6831848-1 (Version None)
Quarter: 2010Q3

REPORT INFORMATION
  Report Type: 
  Country: None (occurrence: None)
  Receive Date: 20100712
  Receipt Date: 20100702
  Transmission Date: 20110219
  Serious: Yes (Other)
  Sender: FDA-Public Use
  Company Number: AU-PFIZER INC-2010083135

PATIENT
  Sex: Female

DRUGS (2)
  1. CADUET [Suspect]
     Indication: HYPERTENSION
     Dosage: UNK
     Dates: start: 20090602
  2. CADUET [Suspect]
     Indication: DYSLIPIDAEMIA

REACTIONS (3)
  - EPIDERMAL GROWTH FACTOR RECEPTOR INCREASED [None]
  - EYE SWELLING [None]
  - OEDEMA PERIPHERAL [None]
